FAERS Safety Report 13197696 (Version 2)
Quarter: 2017Q2

REPORT INFORMATION
  Report Type: Spontaneous
  Country: SE (occurrence: SE)
  Receive Date: 20170208
  Receipt Date: 20170404
  Transmission Date: 20170830
  Serious: Yes (Other)
  Sender: FDA-Public Use
  Company Number: SE-JNJFOC-20170101069

PATIENT
  Age: 72 Year
  Sex: Female

DRUGS (8)
  1. PURSENNID [Concomitant]
     Active Substance: SENNOSIDES A AND B
     Route: 065
  2. IMBRUVICA [Suspect]
     Active Substance: IBRUTINIB
     Indication: MANTLE CELL LYMPHOMA
     Route: 048
     Dates: start: 20161221, end: 20161231
  3. OMEPRAZOLE. [Concomitant]
     Active Substance: OMEPRAZOLE
     Dosage: 20 MGX1
     Route: 065
  4. FRAGMIN [Concomitant]
     Active Substance: DALTEPARIN SODIUM
     Dosage: 5000 IUX1 (INTERMITTENT FF + LUNG EMBOLI AT LYMPHOMA DEBUT)
     Route: 065
  5. STESOLID [Concomitant]
     Active Substance: DIAZEPAM
     Dosage: PER NEEDED
     Route: 065
  6. IMBRUVICA [Suspect]
     Active Substance: IBRUTINIB
     Indication: MANTLE CELL LYMPHOMA
     Route: 048
     Dates: start: 201612, end: 20161231
  7. VALACICLOVIR [Concomitant]
     Active Substance: VALACYCLOVIR HYDROCHLORIDE
     Dosage: 500 MG X2
     Route: 065
  8. LUNELAX [Concomitant]
     Active Substance: PLANTAGO OVATA LEAF
     Route: 065

REACTIONS (7)
  - Bacteraemia [Recovered/Resolved with Sequelae]
  - Intestinal haemorrhage [Unknown]
  - Incorrect dose administered [Unknown]
  - Intestinal sepsis [Unknown]
  - Muscular weakness [Not Recovered/Not Resolved]
  - Off label use [Unknown]
  - Tremor [Unknown]

NARRATIVE: CASE EVENT DATE: 20161221
